FAERS Safety Report 18457312 (Version 3)
Quarter: 2021Q2

REPORT INFORMATION
  Report Type: Spontaneous
  Country: US (occurrence: US)
  Receive Date: 20201103
  Receipt Date: 20210618
  Transmission Date: 20210717
  Serious: Yes (Death, Hospitalization, Other)
  Sender: FDA-Public Use
  Company Number: US-GILEAD-2020-0501340

PATIENT
  Age: 57 Year
  Sex: Male
  Weight: 72.56 kg

DRUGS (10)
  1. TIVICAY [Concomitant]
     Active Substance: DOLUTEGRAVIR SODIUM
  2. LOPERAMIDE [Concomitant]
     Active Substance: LOPERAMIDE
  3. ACETAMINOPHEN. [Concomitant]
     Active Substance: ACETAMINOPHEN
  4. ATORVASTATIN [Concomitant]
     Active Substance: ATORVASTATIN
  5. ZITHROMAX [Concomitant]
     Active Substance: AZITHROMYCIN DIHYDRATE
  6. ASPIRIN (E.C.) [Concomitant]
     Active Substance: ASPIRIN
  7. EMTRIVA [Concomitant]
     Active Substance: EMTRICITABINE
  8. VIREAD [Suspect]
     Active Substance: TENOFOVIR DISOPROXIL FUMARATE
     Indication: HIV INFECTION
     Dosage: UNK
     Route: 048
     Dates: start: 201101, end: 201901
  9. ZIAGEN [Concomitant]
     Active Substance: ABACAVIR SULFATE
  10. ALBUTEROL SULFATE. [Concomitant]
     Active Substance: ALBUTEROL SULFATE

REACTIONS (9)
  - Renal failure [Unknown]
  - Emotional distress [Recovered/Resolved]
  - Depression [Recovered/Resolved]
  - Anxiety [Recovered/Resolved]
  - Chronic kidney disease [Recovered/Resolved]
  - Pain [Recovered/Resolved]
  - Death [Fatal]
  - End stage renal disease [Recovered/Resolved]
  - Multiple fractures [Recovered/Resolved]

NARRATIVE: CASE EVENT DATE: 201201
